FAERS Safety Report 7217615-8 (Version None)
Quarter: 2011Q1

REPORT INFORMATION
  Report Type: 
  Country: None (occurrence: None)
  Receive Date: 20110110
  Receipt Date: 20101228
  Transmission Date: 20110831
  Serious: Yes (Hospitalization, Other)
  Sender: FDA-Public Use
  Company Number: JP-GENZYME-THYM-1002245

PATIENT
  Sex: Male
  Weight: 57 kg

DRUGS (14)
  1. GLYCYRRHIZIN GLYCINE CYSTEINE COMBINED DRUG [Concomitant]
     Indication: LIVER DISORDER
     Dosage: UNK
     Route: 065
     Dates: start: 20090923, end: 20091025
  2. ACYCLOVIR [Concomitant]
     Indication: ANTIVIRAL PROPHYLAXIS
     Dosage: UNK
     Route: 065
     Dates: start: 20090928, end: 20091028
  3. ALLOPURINOL [Concomitant]
     Indication: HYPERURICAEMIA
     Dosage: UNK
     Route: 065
     Dates: start: 20090920, end: 20091230
  4. TACROLIMUS [Suspect]
     Indication: PRODUCT USED FOR UNKNOWN INDICATION
     Route: 065
  5. DORIPENEM HYDRATE [Concomitant]
     Indication: FEBRILE NEUTROPENIA
     Dosage: UNK
     Route: 065
     Dates: start: 20090923, end: 20091030
  6. SULPYRINE [Concomitant]
     Indication: ALLERGY PROPHYLAXIS
     Dosage: UNK
     Route: 065
     Dates: start: 20090923, end: 20090924
  7. MICAFUNGIN SODIUM [Concomitant]
     Indication: ANTIFUNGAL PROPHYLAXIS
     Dosage: UNK
     Route: 065
     Dates: start: 20090923, end: 20091030
  8. URSODIOL [Concomitant]
     Indication: PROPHYLAXIS
     Dosage: UNK
     Route: 065
     Dates: start: 20090920, end: 20091030
  9. CIPROFLOXACIN HCL [Concomitant]
     Indication: STERILISATION
     Dosage: UNK
     Route: 065
     Dates: start: 20090920, end: 20091030
  10. LANSOPRAZOLE [Concomitant]
     Indication: PROPHYLAXIS
     Dosage: UNK
     Route: 065
     Dates: start: 20090920, end: 20091230
  11. METRONIDAZOLE [Concomitant]
     Indication: FEBRILE NEUTROPENIA
     Dosage: UNK
     Route: 065
     Dates: start: 20090923, end: 20091001
  12. ZOLPIDEM TARTRATE [Concomitant]
     Indication: HYPNOTHERAPY
     Dosage: UNK
     Route: 065
     Dates: start: 20090920, end: 20091030
  13. THYMOGLOBULIN [Suspect]
     Indication: BONE MARROW CONDITIONING REGIMEN
     Dosage: 125 MG, QD
     Route: 042
     Dates: start: 20090922, end: 20090923
  14. DEXCHLORPHENIRAMINE MALEATE [Concomitant]
     Indication: ALLERGY PROPHYLAXIS
     Dosage: UNK
     Route: 065
     Dates: start: 20090923, end: 20090924

REACTIONS (2)
  - LYMPHOPROLIFERATIVE DISORDER [None]
  - GRAFT VERSUS HOST DISEASE [None]
